FAERS Safety Report 5927828-0 (Version None)
Quarter: 2008Q4

REPORT INFORMATION
  Report Type: 
  Country: None (occurrence: None)
  Receive Date: 20081023
  Receipt Date: 20081014
  Transmission Date: 20090506
  Serious: Yes (Hospitalization)
  Sender: FDA-Public Use
  Company Number: ES-ROCHE-592177

PATIENT
  Age: 68 Year
  Sex: Female

DRUGS (3)
  1. CELLCEPT [Suspect]
     Indication: RENAL TRANSPLANT
     Route: 048
     Dates: start: 20080117
  2. TACROLIMUS [Interacting]
     Indication: RENAL TRANSPLANT
     Route: 048
     Dates: start: 20080116
  3. IDEOS [Concomitant]
     Route: 048

REACTIONS (3)
  - DRUG INTERACTION [None]
  - LEUKOPENIA [None]
  - RENAL FAILURE ACUTE [None]
